FAERS Safety Report 11045701 (Version 5)
Quarter: 2015Q2

REPORT INFORMATION
  Report Type: Spontaneous
  Country: JP (occurrence: JP)
  Receive Date: 20150417
  Receipt Date: 20150602
  Transmission Date: 20150821
  Serious: Yes (Hospitalization)
  Sender: FDA-Public Use
  Company Number: JP-UNITED THERAPEUTICS-UNT-2015-004423

PATIENT
  Age: 54 Year
  Sex: Female

DRUGS (7)
  1. REMODULIN [Suspect]
     Active Substance: TREPROSTINIL
     Dosage: 0.010 ?G/KG, CONTINUING
     Route: 058
     Dates: start: 20150403
  2. REMODULIN [Suspect]
     Active Substance: TREPROSTINIL
     Dosage: 0.013 ?G/KG, CONTINUING
     Route: 058
     Dates: start: 20150410
  3. ADEMPAS [Concomitant]
     Active Substance: RIOCIGUAT
     Indication: PRODUCT USED FOR UNKNOWN INDICATION
     Route: 048
  4. BOSENTAN HYDRATE [Concomitant]
     Indication: PRODUCT USED FOR UNKNOWN INDICATION
     Route: 048
  5. CARELOAD [Concomitant]
     Active Substance: BERAPROST SODIUM
     Indication: PRODUCT USED FOR UNKNOWN INDICATION
     Route: 048
  6. REMODULIN [Suspect]
     Active Substance: TREPROSTINIL
     Indication: PULMONARY ARTERIAL HYPERTENSION
     Dosage: 0.010 ?G/KG, CONTINUING
     Route: 041
     Dates: start: 20150325
  7. REMODULIN [Suspect]
     Active Substance: TREPROSTINIL
     Dosage: 0.025 ?G/KG, UNK
     Route: 058
     Dates: start: 20150403

REACTIONS (10)
  - Device dislocation [Recovered/Resolved]
  - Phlebitis [Recovered/Resolved]
  - Blood pressure decreased [Unknown]
  - Infusion site pruritus [Not Recovered/Not Resolved]
  - Drug dose omission [Recovered/Resolved]
  - Infusion site erythema [Recovered/Resolved]
  - Treatment noncompliance [Recovered/Resolved]
  - Infusion site pain [Recovered/Resolved]
  - Infusion site induration [Unknown]
  - Restlessness [Unknown]

NARRATIVE: CASE EVENT DATE: 20150330
